FAERS Safety Report 7301226-X (Version None)
Quarter: 2011Q1

REPORT INFORMATION
  Report Type: 
  Country: None (occurrence: None)
  Receive Date: 20110218
  Receipt Date: 20110214
  Transmission Date: 20110831
  Serious: Yes (Death, Hospitalization, Other)
  Sender: FDA-Public Use
  Company Number: CA-ELI_LILLY_AND_COMPANY-CA201009000188

PATIENT
  Age: 62 Year
  Sex: Female
  Weight: 41.723 kg

DRUGS (16)
  1. SYMBICORT [Concomitant]
     Dosage: UNK, UNKNOWN
     Route: 065
  2. PANTOLOC                           /01263202/ [Concomitant]
     Dosage: UNK, UNKNOWN
     Route: 065
  3. ALBUTEROL [Concomitant]
     Dosage: UNK, 1 TO 2 PUFFS
     Route: 065
  4. CELEBREX [Concomitant]
     Dosage: UNK, UNKNOWN
     Route: 065
  5. CENTRUM FORTE [Concomitant]
     Dosage: UNK, UNKNOWN
     Route: 065
  6. HYDROCHLORZIDE [Concomitant]
     Dosage: UNK, UNKNOWN
     Route: 065
  7. VITAMIN D [Concomitant]
     Dosage: UNK, UNKNOWN
     Route: 065
  8. PERCOCET [Concomitant]
  9. FORTEO [Suspect]
     Indication: OSTEOPOROSIS
     Dosage: 20 UG, DAILY (1/D)
     Route: 058
     Dates: start: 20100120, end: 20100725
  10. CLONAZEPAM [Concomitant]
     Dosage: UNK, UNKNOWN
     Route: 065
  11. COLACE [Concomitant]
     Dosage: UNK, UNKNOWN
     Route: 065
  12. SPIRIVA [Concomitant]
     Dosage: UNK, UNKNOWN
     Route: 065
  13. AVENTYL HYDROCHLORIDE [Concomitant]
     Dosage: UNK, UNKNOWN
     Route: 065
  14. EFFEXOR [Concomitant]
     Dosage: UNK, UNKNOWN
     Route: 065
  15. OXYCONTIN [Concomitant]
     Dosage: UNK, UNKNOWN
     Route: 065
  16. DETROL [Concomitant]
     Dosage: UNK, UNKNOWN
     Route: 065

REACTIONS (8)
  - DECREASED APPETITE [None]
  - GENERAL PHYSICAL HEALTH DETERIORATION [None]
  - HYPERCALCAEMIA [None]
  - CHRONIC OBSTRUCTIVE PULMONARY DISEASE [None]
  - BRONCHITIS CHRONIC [None]
  - DEHYDRATION [None]
  - MALAISE [None]
  - EMPHYSEMA [None]
